FAERS Safety Report 21387474 (Version 2)
Quarter: 2022Q4

REPORT INFORMATION
  Report Type: Spontaneous
  Country: US (occurrence: US)
  Receive Date: 20220928
  Receipt Date: 20221102
  Transmission Date: 20230112
  Serious: No
  Sender: FDA-Public Use
  Company Number: US-BRISTOL-MYERS SQUIBB COMPANY-2022-113192

PATIENT
  Age: 85 Year
  Sex: Male

DRUGS (1)
  1. REBLOZYL [Suspect]
     Active Substance: LUSPATERCEPT-AAMT
     Indication: Product used for unknown indication
     Dosage: DOSE : 50 MG - INFUSE 50 MG EVERY 3 W;     FREQ : INFUSE EVERY 3 WEEKS
     Route: 065

REACTIONS (1)
  - Haemoglobin abnormal [Unknown]
